FAERS Safety Report 6186272-4 (Version None)
Quarter: 2009Q2

REPORT INFORMATION
  Report Type: 
  Country: None (occurrence: None)
  Receive Date: 20090511
  Receipt Date: 20090507
  Transmission Date: 20091009
  Serious: Yes (Other)
  Sender: FDA-Public Use
  Company Number: IT-ROXANE LABORATORIES, INC.-2009-RO-00461RO

PATIENT
  Age: 42 Year
  Sex: Female

DRUGS (8)
  1. FLUCONAZOLE [Suspect]
     Indication: VULVOVAGINAL CANDIDIASIS
     Route: 048
  2. FLUCONAZOLE [Suspect]
     Indication: SKIN TEST
     Route: 023
  3. FLUCONAZOLE [Suspect]
     Indication: ALLERGY TEST
     Route: 048
  4. SODIUM CHLORIDE [Suspect]
     Indication: MEDICATION DILUTION
  5. ANTIHISTAMINES [Concomitant]
     Indication: RASH MACULO-PAPULAR
  6. CORTICOSTEROIDS [Concomitant]
     Indication: RASH MACULO-PAPULAR
  7. HISTAMINE DIHYDROCHLORIDE [Concomitant]
     Indication: ALLERGY TEST
  8. ITRACONAZOLE [Concomitant]
     Indication: ALLERGY TEST
     Route: 048

REACTIONS (3)
  - ALLERGY TEST POSITIVE [None]
  - RASH MACULO-PAPULAR [None]
  - SKIN TEST POSITIVE [None]
